FAERS Safety Report 7332437-5 (Version None)
Quarter: 2011Q1

REPORT INFORMATION
  Report Type: 
  Country: None (occurrence: None)
  Receive Date: 20110222
  Receipt Date: 20110208
  Transmission Date: 20110831
  Serious: Yes (Hospitalization)
  Sender: FDA-Public Use
  Company Number: 1000018534

PATIENT
  Age: 57 Year
  Sex: Female

DRUGS (5)
  1. LYRICA (PREGABALIN) (CAPSULES) (PREGABALIN) [Concomitant]
  2. CITALOPRAM(CITALOPRAM HYDROBROMIDE) (TABLETS) [Suspect]
     Dosage: 20 MG (20 MG,1 IN 1 D),ORAL
     Route: 048
     Dates: start: 20100101, end: 20101230
  3. DEPAKOTE (VALPROATE SEMISODIUM) (TABLETS) (VALPROATE SEMISODIUM) [Concomitant]
  4. LASIX [Suspect]
     Dates: start: 20100101, end: 20101230
  5. ZYPREXA [Concomitant]

REACTIONS (3)
  - TONIC CLONIC MOVEMENTS [None]
  - HYPONATRAEMIA [None]
  - BRAIN OEDEMA [None]
